FAERS Safety Report 12080636 (Version 1)
Quarter: 2016Q1

REPORT INFORMATION
  Report Type: Other
  Country: FR (occurrence: FR)
  Receive Date: 20160216
  Receipt Date: 20160216
  Transmission Date: 20160526
  Serious: Yes (Hospitalization)
  Sender: FDA-Public Use
  Company Number: FR-MYLANLABS-2016M1005440

PATIENT

DRUGS (5)
  1. EUPHYLLINE                         /00003701/ [Concomitant]
     Active Substance: AMINOPHYLLINE
     Indication: PRODUCT USED FOR UNKNOWN INDICATION
     Dosage: 600 MG, QD
     Route: 065
  2. FONDAPARINUX [Suspect]
     Active Substance: FONDAPARINUX
     Indication: OFF LABEL USE
  3. OFLOCET                            /00731801/ [Concomitant]
     Active Substance: OFLOXACIN
     Indication: PRODUCT USED FOR UNKNOWN INDICATION
     Dosage: 400 MG, QD
     Dates: start: 20160115
  4. FONDAPARINUX [Suspect]
     Active Substance: FONDAPARINUX
     Indication: PROPHYLAXIS
     Dosage: 7.5 MG, QD
     Route: 058
     Dates: start: 20160115, end: 20160118
  5. DIFFU K [Concomitant]
     Active Substance: POTASSIUM CHLORIDE
     Indication: PRODUCT USED FOR UNKNOWN INDICATION
     Dosage: 6 DF, QD

REACTIONS (3)
  - Haemarthrosis [Recovered/Resolved]
  - Off label use [Recovered/Resolved]
  - Haematoma [Recovered/Resolved]

NARRATIVE: CASE EVENT DATE: 20160115
